FAERS Safety Report 4865957-3 (Version None)
Quarter: 2005Q4

REPORT INFORMATION
  Report Type: 
  Country: None (occurrence: None)
  Receive Date: 20051226
  Receipt Date: 20051201
  Transmission Date: 20060501
  Serious: Yes (Life-Threatening, Hospitalization, Other)
  Sender: FDA-Public Use
  Company Number: NL-AVENTIS-200520664GDDC

PATIENT
  Age: 19 Year
  Sex: Female

DRUGS (4)
  1. DESMOPRESSIN [Suspect]
     Indication: ENURESIS
     Route: 048
     Dates: start: 20050920, end: 20050927
  2. DESMOPRESSIN [Suspect]
     Route: 048
     Dates: start: 20050928, end: 20051011
  3. LEVONORGESTREL AND ETHINYL ESTRADIOL [Concomitant]
     Indication: CONTRACEPTION
  4. PAROXETINE HCL [Concomitant]
     Route: 048
     Dates: start: 20050801

REACTIONS (5)
  - FLUSHING [None]
  - HYPERHIDROSIS [None]
  - PULMONARY EMBOLISM [None]
  - THIRST [None]
  - URINARY RETENTION [None]
